FAERS Safety Report 8077566-6 (Version None)
Quarter: 2012Q1

REPORT INFORMATION
  Report Type: 
  Country: None (occurrence: None)
  Receive Date: 20120127
  Receipt Date: 20120125
  Transmission Date: 20120608
  Serious: Yes (Death)
  Sender: FDA-Public Use
  Company Number: AU-B.I. PHARMACEUTICALS,INC./RIDGEFIELD-2011-AU-01380AU

PATIENT
  Sex: Male
  Weight: 62 kg

DRUGS (6)
  1. BICOR [Concomitant]
  2. ZOCOR [Concomitant]
  3. NSAID [Concomitant]
  4. PRADAXA [Suspect]
     Indication: ATRIAL FIBRILLATION
  5. PRADAXA [Suspect]
     Indication: CEREBROVASCULAR ACCIDENT PROPHYLAXIS
     Dates: start: 20110711
  6. DIGOXIN [Concomitant]

REACTIONS (1)
  - PULMONARY FIBROSIS [None]
